FAERS Safety Report 5025525-X (Version None)
Quarter: 2006Q2

REPORT INFORMATION
  Report Type: 
  Country: None (occurrence: None)
  Receive Date: 20060607
  Receipt Date: 20060301
  Transmission Date: 20061013
  Serious: Yes (Death, Hospitalization, Other)
  Sender: FDA-Public Use
  Company Number: 2006000520

PATIENT
  Age: 76 Year
  Sex: Male

DRUGS (5)
  1. TARCEVA [Suspect]
     Indication: NON-SMALL CELL LUNG CANCER
     Dosage: ORAL
     Route: 048
     Dates: start: 20060119, end: 20060217
  2. DECORTIN (PREDNISONE) [Concomitant]
  3. PANTOZOL (PANTOPRAZOLE SODIUM) [Concomitant]
  4. NEBIVOLOL HCL [Concomitant]
  5. ENOXAPARIN SODIUM [Concomitant]

REACTIONS (8)
  - BACTERIA STOOL IDENTIFIED [None]
  - DIARRHOEA [None]
  - INFLAMMATION [None]
  - PNEUMONITIS [None]
  - PSEUDOMONAS INFECTION [None]
  - PYREXIA [None]
  - RASH [None]
  - SPINAL FRACTURE [None]
